FAERS Safety Report 24602773 (Version 1)
Quarter: 2024Q4

REPORT INFORMATION
  Report Type: Report from Study
  Country: US (occurrence: US)
  Receive Date: 20241111
  Receipt Date: 20241111
  Transmission Date: 20250114
  Serious: Yes (Hospitalization, Other)
  Sender: AUROBINDO
  Company Number: US-AUROBINDO-AUR-APL-2024-054296

PATIENT
  Age: 59 Year
  Sex: Female
  Weight: 86 kg

DRUGS (5)
  1. CEPHALEXIN [Suspect]
     Active Substance: CEPHALEXIN
     Indication: Staphylococcal abscess
     Dosage: UNK
     Route: 048
  2. DOXYCYCLINE [Suspect]
     Active Substance: DOXYCYCLINE
     Indication: Staphylococcal abscess
     Dosage: UNK
     Route: 048
  3. LINEZOLID [Suspect]
     Active Substance: LINEZOLID
     Indication: Staphylococcal abscess
     Dosage: UNK
     Route: 048
  4. COTRIMOXAZOLE [Suspect]
     Active Substance: SULFAMETHOXAZOLE\TRIMETHOPRIM
     Indication: Staphylococcal abscess
     Dosage: UNK
     Route: 048
  5. DALBAVANCIN [Concomitant]
     Active Substance: DALBAVANCIN
     Indication: Infection
     Dosage: 1500 MILLIGRAM (227)
     Route: 065

REACTIONS (3)
  - Acute kidney injury [Unknown]
  - Hepatitis [Unknown]
  - Pyrexia [Unknown]
